FAERS Safety Report 4516517-5 (Version None)
Quarter: 2005Q1

REPORT INFORMATION
  Report Type: 
  Country: None (occurrence: None)
  Receive Date: 20041029
  Receipt Date: 20040706
  Transmission Date: 20050727
  Serious: No
  Sender: FDA-Public Use
  Company Number: 2004-118204-NL

PATIENT
  Age: 22 Year
  Sex: Female
  Weight: 61.4 kg

DRUGS (6)
  1. NUVARING [Suspect]
     Indication: CONTRACEPTION
     Dosage: DF DAILY VAGINAL
     Route: 067
     Dates: start: 20040618
  2. ZOLOFT [Concomitant]
  3. BUPROPION HCL [Concomitant]
  4. CALCIUM [Concomitant]
  5. CRANBERRY PILLS [Concomitant]
  6. NITRUFURANTOIN [Concomitant]

REACTIONS (2)
  - DYSMENORRHOEA [None]
  - METRORRHAGIA [None]
